FAERS Safety Report 4592559-9 (Version None)
Quarter: 2005Q1

REPORT INFORMATION
  Report Type: 
  Country: None (occurrence: None)
  Receive Date: 20050222
  Receipt Date: 20050203
  Transmission Date: 20050727
  Serious: No
  Sender: FDA-Public Use
  Company Number: 2005AP01114

PATIENT
  Age: 20 Year

DRUGS (2)
  1. SEROQUEL [Suspect]
  2. CIPRAMIL [Suspect]

REACTIONS (1)
  - SUICIDAL IDEATION [None]
